FAERS Safety Report 16997525 (Version 1)
Quarter: 2019Q4

REPORT INFORMATION
  Report Type: Spontaneous
  Country: DZ (occurrence: DZ)
  Receive Date: 20191106
  Receipt Date: 20191106
  Transmission Date: 20200122
  Serious: Yes (Other)
  Sender: FDA-Public Use
  Company Number: DZ-ABBVIE-19K-003-2991700-00

PATIENT
  Age: 63 Year
  Sex: Male
  Weight: 62 kg

DRUGS (2)
  1. HUMIRA [Suspect]
     Active Substance: ADALIMUMAB
     Indication: PRODUCT USED FOR UNKNOWN INDICATION
     Route: 058
     Dates: start: 20161204, end: 20190910
  2. VALSARTAN. [Concomitant]
     Active Substance: VALSARTAN
     Indication: HYPERTENSION
     Dates: start: 201701

REACTIONS (10)
  - Nodule [Unknown]
  - CD4 lymphocytes abnormal [Recovering/Resolving]
  - B-lymphocyte count abnormal [Recovering/Resolving]
  - CD8 lymphocytes abnormal [Recovering/Resolving]
  - Fungal skin infection [Unknown]
  - Cutaneous lymphoma [Recovering/Resolving]
  - Erythema [Unknown]
  - Adverse event [Unknown]
  - T-lymphocyte count increased [Recovering/Resolving]
  - Pruritus [Unknown]

NARRATIVE: CASE EVENT DATE: 20190827
